FAERS Safety Report 8240147-5 (Version None)
Quarter: 2012Q1

REPORT INFORMATION
  Report Type: 
  Country: None (occurrence: None)
  Receive Date: 20120328
  Receipt Date: 20120326
  Transmission Date: 20120608
  Serious: Yes (Hospitalization, Other)
  Sender: FDA-Public Use
  Company Number: US-PFIZER INC-2012077644

PATIENT
  Age: 47 Year
  Sex: Female
  Weight: 127 kg

DRUGS (7)
  1. NORVASC [Suspect]
     Indication: OEDEMA PERIPHERAL
  2. CALCIUM [Concomitant]
     Dosage: UNK
     Route: 048
  3. NORVASC [Suspect]
     Indication: HYPERTENSION
     Dosage: 10 MG, DAILY
     Dates: start: 20100101
  4. ALDACTONE [Suspect]
     Indication: HYPERTENSION
     Dosage: 25 MG, DAILY
  5. NOVOLIN 70/30 [Concomitant]
     Indication: DIABETES MELLITUS
     Dosage: 65 IU, 2X/DAY
  6. ALDACTONE [Suspect]
     Indication: OEDEMA PERIPHERAL
  7. GLUCOPHAGE [Concomitant]
     Indication: DIABETES MELLITUS
     Dosage: 500 MG, 2X/DAY

REACTIONS (4)
  - BLINDNESS UNILATERAL [None]
  - VISUAL ACUITY REDUCED [None]
  - CARDIAC OPERATION [None]
  - CEREBROVASCULAR ACCIDENT [None]
